FAERS Safety Report 11046620 (Version 2)
Quarter: 2015Q2

REPORT INFORMATION
  Report Type: Spontaneous
  Country: US (occurrence: US)
  Receive Date: 20150420
  Receipt Date: 20150506
  Transmission Date: 20150821
  Serious: No
  Sender: FDA-Public Use
  Company Number: US-LEO PHARMA-232956

PATIENT
  Sex: Male

DRUGS (2)
  1. PICATO [Suspect]
     Active Substance: INGENOL MEBUTATE
  2. PICATO [Suspect]
     Active Substance: INGENOL MEBUTATE
     Indication: SOLAR LENTIGO
     Dates: start: 20150213

REACTIONS (5)
  - Inappropriate schedule of drug administration [Unknown]
  - Application site exfoliation [Recovered/Resolved]
  - Incorrect dose administered [Unknown]
  - Product packaging quantity issue [Unknown]
  - Drug administration error [Unknown]
